FAERS Safety Report 18443163 (Version 1)
Quarter: 2020Q4

REPORT INFORMATION
  Report Type: Spontaneous
  Country: FR (occurrence: FR)
  Receive Date: 20201030
  Receipt Date: 20201030
  Transmission Date: 20210114
  Serious: Yes (Other)
  Sender: FDA-Public Use
  Company Number: FR-BAUSCH-BL-2020-031410

PATIENT
  Age: 47 Year
  Sex: Female
  Weight: 64 kg

DRUGS (6)
  1. CEFAZOLINE [Suspect]
     Active Substance: CEFAZOLIN SODIUM
     Indication: ANTIBIOTIC PROPHYLAXIS
     Dosage: UNSPECIFIED
     Route: 042
     Dates: start: 20201001, end: 20201001
  2. KETAMINE [Suspect]
     Active Substance: KETAMINE
     Indication: ANAESTHESIA
     Dosage: UNSPECIFIED
     Route: 042
     Dates: start: 20201001, end: 20201001
  3. PROPOFOL. [Suspect]
     Active Substance: PROPOFOL
     Indication: ANAESTHESIA
     Dosage: UNSPECIFIED
     Route: 042
     Dates: start: 20201001, end: 20201001
  4. SUFENTANIL [Suspect]
     Active Substance: SUFENTANIL
     Indication: ANAESTHESIA
     Dosage: UNSPECIFIED
     Route: 042
     Dates: start: 20201001, end: 20201001
  5. DEXAMETHASONE. [Suspect]
     Active Substance: DEXAMETHASONE
     Indication: ANAESTHESIA
     Dosage: UNSPECIFIED
     Route: 042
     Dates: start: 20201001, end: 20201001
  6. TRACRIUM [Suspect]
     Active Substance: ATRACURIUM BESYLATE
     Indication: ANAESTHESIA
     Dosage: UNSPECIFIED
     Route: 042
     Dates: start: 20201001, end: 20201001

REACTIONS (2)
  - Rash [Recovered/Resolved]
  - Wheezing [Recovered/Resolved]

NARRATIVE: CASE EVENT DATE: 20201001
